FAERS Safety Report 6031806-3 (Version None)
Quarter: 2009Q1

REPORT INFORMATION
  Report Type: 
  Country: None (occurrence: None)
  Receive Date: 20090107
  Receipt Date: 20090107
  Transmission Date: 20090719
  Serious: Yes (Other)
  Sender: FDA-Public Use
  Company Number: None

PATIENT
  Age: 65 Year
  Sex: Female
  Weight: 67.1324 kg

DRUGS (1)
  1. DILTIAZEM [Suspect]
     Indication: TACHYCARDIA
     Dosage: 100 MG CONT. IV
     Route: 042
     Dates: start: 20081226

REACTIONS (4)
  - ATRIAL FLUTTER [None]
  - NO THERAPEUTIC RESPONSE [None]
  - PRODUCT QUALITY ISSUE [None]
  - TACHYCARDIA [None]
